FAERS Safety Report 7659198-4 (Version None)
Quarter: 2011Q3

REPORT INFORMATION
  Report Type: 
  Country: None (occurrence: None)
  Receive Date: 20110805
  Receipt Date: 20110726
  Transmission Date: 20111222
  Serious: Yes (Death)
  Sender: FDA-Public Use
  Company Number: US-PFIZER INC-2011170157

PATIENT
  Age: 38 Year
  Sex: Male

DRUGS (2)
  1. EFFEXOR [Suspect]
     Dosage: UNK
     Route: 048
  2. PRISTIQ [Suspect]
     Dosage: UNK
     Route: 048

REACTIONS (1)
  - COMPLETED SUICIDE [None]
